FAERS Safety Report 11771998 (Version 5)
Quarter: 2017Q1

REPORT INFORMATION
  Report Type: Report from Study
  Country: CO (occurrence: CO)
  Receive Date: 20151124
  Receipt Date: 20170123
  Transmission Date: 20170428
  Serious: Yes (Hospitalization, Other)
  Sender: FDA-Public Use
  Company Number: PHHY2015CO152076

PATIENT
  Age: 61 Year
  Sex: Male
  Weight: 71 kg

DRUGS (11)
  1. REVOLADE [Suspect]
     Active Substance: ELTROMBOPAG
     Dosage: 25 MG, QOD
     Route: 048
     Dates: end: 201610
  2. LACTULOSE. [Concomitant]
     Active Substance: LACTULOSE
     Indication: DYSPEPSIA
     Dosage: UNK UNK, QD
     Route: 048
  3. REVOLADE [Suspect]
     Active Substance: ELTROMBOPAG
     Indication: IMMUNE THROMBOCYTOPENIC PURPURA
     Dosage: 25 MG, BID
     Route: 048
     Dates: start: 20150401
  4. METOCLOPRAMIDE. [Concomitant]
     Active Substance: METOCLOPRAMIDE
     Indication: PRODUCT USED FOR UNKNOWN INDICATION
     Route: 065
  5. OMEPRAZOLE. [Concomitant]
     Active Substance: OMEPRAZOLE
     Indication: PRODUCT USED FOR UNKNOWN INDICATION
     Route: 065
  6. SPIRONOLACTONE. [Concomitant]
     Active Substance: SPIRONOLACTONE
     Indication: FLUID RETENTION
     Dosage: UNK UNK, QD
     Route: 048
  7. FUROSEMIDE. [Concomitant]
     Active Substance: FUROSEMIDE
     Indication: PRODUCT USED FOR UNKNOWN INDICATION
     Route: 065
  8. L-ORNITHINE L-ASPARTATE [Concomitant]
     Indication: PRODUCT USED FOR UNKNOWN INDICATION
     Route: 065
  9. REVOLADE [Suspect]
     Active Substance: ELTROMBOPAG
     Dosage: 25 MG, QD
     Route: 048
  10. PROPANOLOL [Concomitant]
     Active Substance: PROPRANOLOL HYDROCHLORIDE
     Indication: PORTAL HYPERTENSION
     Dosage: UNK UNK, QD
     Route: 048
  11. METFORMIN [Concomitant]
     Active Substance: METFORMIN HYDROCHLORIDE
     Indication: DIABETES MELLITUS
     Dosage: UNK (1 IN THE MORNING AND 1 AT MID DAY OR AT NIGHT)
     Route: 048

REACTIONS (12)
  - Depression [Unknown]
  - Cataract [Unknown]
  - Varices oesophageal [Not Recovered/Not Resolved]
  - Delirium [Unknown]
  - Dizziness [Unknown]
  - Hepatic cirrhosis [Unknown]
  - Abdominal distension [Unknown]
  - Blood glucose increased [Unknown]
  - Platelet count decreased [Unknown]
  - Encephalopathy [Recovered/Resolved]
  - Bone cancer [Unknown]
  - Slow speech [Unknown]

NARRATIVE: CASE EVENT DATE: 20160325
